FAERS Safety Report 7130876-9 (Version None)
Quarter: 2010Q4

REPORT INFORMATION
  Report Type: 
  Country: None (occurrence: None)
  Receive Date: 20101201
  Receipt Date: 20101123
  Transmission Date: 20110411
  Serious: Yes (Other)
  Sender: FDA-Public Use
  Company Number: US-ROCHE-744835

PATIENT
  Sex: Female

DRUGS (3)
  1. AVASTIN [Suspect]
     Route: 065
  2. ELOXATIN [Suspect]
     Route: 065
  3. FLUOROURACIL [Suspect]
     Route: 065

REACTIONS (1)
  - RENAL FAILURE [None]
